FAERS Safety Report 23258298 (Version 12)
Quarter: 2025Q3

REPORT INFORMATION
  Report Type: Spontaneous
  Country: CA (occurrence: CA)
  Receive Date: 20231204
  Receipt Date: 20250904
  Transmission Date: 20251021
  Serious: Yes (Other)
  Sender: PFIZER
  Company Number: CA-PFIZER INC-202300267673

PATIENT
  Age: 14 Year
  Sex: Male

DRUGS (4)
  1. SOMATROPIN [Suspect]
     Active Substance: SOMATROPIN
     Indication: Growth hormone deficiency
     Dosage: 1 DF, DAILY (0.9 MG + 1 MG PRESCRIBED - DOSE 0.9 MG 7 DAYS/WEEK FOR 30 DAYS - FOR 1 YEAR AT BEDTIME)
  2. SOMATROPIN [Suspect]
     Active Substance: SOMATROPIN
     Route: 058
     Dates: start: 20230803, end: 20230902
  3. GENOTROPIN [Suspect]
     Active Substance: SOMATROPIN
     Indication: Growth hormone deficiency
  4. GENOTROPIN [Suspect]
     Active Substance: SOMATROPIN
     Route: 058
     Dates: start: 20230803, end: 20230902

REACTIONS (4)
  - Recurrent cancer [Recovering/Resolving]
  - Brain neoplasm malignant [Recovering/Resolving]
  - Second primary malignancy [Unknown]
  - Product prescribing error [Unknown]

NARRATIVE: CASE EVENT DATE: 20230101
